FAERS Safety Report 25567246 (Version 3)
Quarter: 2025Q3

REPORT INFORMATION
  Report Type: Spontaneous
  Country: EU (occurrence: EU)
  Receive Date: 20250716
  Receipt Date: 20250805
  Transmission Date: 20251020
  Serious: Yes (Hospitalization)
  Sender: ROCHE
  Company Number: None

PATIENT
  Age: 17 Year
  Sex: Male
  Weight: 55.6 kg

DRUGS (7)
  1. CELLCEPT [Suspect]
     Active Substance: MYCOPHENOLATE MOFETIL
     Indication: Prophylaxis against transplant rejection
     Route: 048
     Dates: start: 20241013, end: 20250520
  2. FLUCONAZOLE [Suspect]
     Active Substance: FLUCONAZOLE
     Indication: Osseous cryptococcosis
     Route: 048
     Dates: start: 20250408
  3. ENVARSUS XR [Suspect]
     Active Substance: TACROLIMUS
     Indication: Prophylaxis against transplant rejection
     Route: 048
     Dates: start: 20241013
  4. TENOFOVIR DISOPROXIL FUMARATE [Suspect]
     Active Substance: TENOFOVIR DISOPROXIL FUMARATE
     Indication: Viral hepatitis carrier
     Route: 048
     Dates: start: 202406
  5. AMBISOME [Suspect]
     Active Substance: AMPHOTERICIN B
     Indication: Osseous cryptococcosis
     Route: 042
     Dates: start: 20250328, end: 20250408
  6. AMPHOTERICIN B [Suspect]
     Active Substance: AMPHOTERICIN B
     Indication: Osseous cryptococcosis
     Route: 065
     Dates: start: 20250328
  7. MYFORTIC [Suspect]
     Active Substance: MYCOPHENOLATE SODIUM
     Indication: Prophylaxis against transplant rejection
     Route: 048
     Dates: start: 20250522

REACTIONS (2)
  - Acute kidney injury [Recovered/Resolved]
  - Skin hyperpigmentation [Unknown]
